FAERS Safety Report 17596513 (Version 2)
Quarter: 2020Q2

REPORT INFORMATION
  Report Type: Report from Study
  Country: GB (occurrence: GB)
  Receive Date: 20200330
  Receipt Date: 20200413
  Transmission Date: 20200713
  Serious: Yes (Hospitalization)
  Sender: FDA-Public Use
  Company Number: GB-ROCHE-2569127

PATIENT
  Age: 62 Year
  Sex: Female
  Weight: 79.3 kg

DRUGS (3)
  1. BLINDED ASPIRIN [ACETYLSALICYLIC ACID] [Suspect]
     Active Substance: ASPIRIN
     Indication: MALIGNANT PERITONEAL NEOPLASM
     Dosage: DATE OF MOST RECENT ADMINISTRATION BEFORE SAE ONSET WAS ON 11/MAR/2020.
     Route: 048
     Dates: start: 20200228
  2. ATEZOLIZUMAB. [Suspect]
     Active Substance: ATEZOLIZUMAB
     Indication: MALIGNANT PERITONEAL NEOPLASM
     Dosage: ON 28/FEB/2020 SHE RECEIVED THE MOST RECENT DOSE OF THE INTRAVENOUS ATEZOLIZUMAB 1200 MG
     Route: 042
     Dates: start: 20200228
  3. BEVACIZUMAB. [Suspect]
     Active Substance: BEVACIZUMAB
     Indication: MALIGNANT PERITONEAL NEOPLASM
     Dosage: ON 28/FEB/2020 SHE RECEIVED THE MOST RECENT DOSE OF THE INTRAVENOUS BEVACIZUMAB 1100 MG
     Route: 042
     Dates: start: 20200228

REACTIONS (1)
  - Gastroenteritis viral [Recovered/Resolved]

NARRATIVE: CASE EVENT DATE: 20200312
